FAERS Safety Report 5114138-7 (Version None)
Quarter: 2006Q3

REPORT INFORMATION
  Report Type: 
  Country: None (occurrence: None)
  Receive Date: 20060925
  Receipt Date: 20060901
  Transmission Date: 20061208
  Serious: Yes (Death, Hospitalization)
  Sender: FDA-Public Use
  Company Number: CN-BRISTOL-MYERS SQUIBB COMPANY-13504022

PATIENT
  Age: 28 Year
  Sex: Female
  Weight: 52 kg

DRUGS (12)
  1. CYCLOPHOSPHAMIDE [Suspect]
     Indication: LUPUS NEPHRITIS
     Route: 042
     Dates: start: 20060803, end: 20060803
  2. OMEPRAZOLE [Concomitant]
     Dates: start: 20060722, end: 20060904
  3. CALCITRIOL [Concomitant]
     Dates: start: 20060722, end: 20060904
  4. PREDNISONE TAB [Concomitant]
     Dates: start: 20060820, end: 20060904
  5. AMLODIPINE [Concomitant]
     Dates: start: 20060725, end: 20060904
  6. HEPARIN [Concomitant]
     Dates: start: 20060731, end: 20060904
  7. CLONIDINE [Concomitant]
     Dates: start: 20060801, end: 20060904
  8. SPIRONOLACTONE [Concomitant]
     Dates: start: 20060801, end: 20060904
  9. FUROSEMIDE [Concomitant]
     Dates: start: 20060722, end: 20060904
  10. ALBUMIN [Concomitant]
     Dates: start: 20060820, end: 20060820
  11. ISOSORBIDE DINITRATE [Concomitant]
     Dates: start: 20060820, end: 20060820
  12. GANCICLOVIR [Concomitant]
     Dates: end: 20060903

REACTIONS (3)
  - HERPES ZOSTER [None]
  - INFECTION [None]
  - PNEUMONIA [None]
